FAERS Safety Report 22236165 (Version 3)
Quarter: 2024Q2

REPORT INFORMATION
  Report Type: Spontaneous
  Country: US (occurrence: US)
  Receive Date: 20230420
  Receipt Date: 20240429
  Transmission Date: 20240715
  Serious: No
  Sender: FDA-Public Use
  Company Number: US-SA-SAC20230419001494

PATIENT
  Sex: Male
  Weight: 71 kg

DRUGS (10)
  1. DUPIXENT [Suspect]
     Active Substance: DUPILUMAB
     Indication: Dermatitis atopic
     Dosage: 300 MG, QOW
     Route: 058
  2. ATENOLOL [Concomitant]
     Active Substance: ATENOLOL
  3. ATORVASTATIN [Concomitant]
     Active Substance: ATORVASTATIN
  4. CLOBETASOL [Concomitant]
     Active Substance: CLOBETASOL
  5. OZEMPIC [Concomitant]
     Active Substance: SEMAGLUTIDE
  6. VYZULTA [Concomitant]
     Active Substance: LATANOPROSTENE BUNOD
  7. LOSARTAN [Concomitant]
     Active Substance: LOSARTAN
  8. DICLOFENAC [Concomitant]
     Active Substance: DICLOFENAC
  9. RINVOQ [Concomitant]
     Active Substance: UPADACITINIB
  10. TRIAMCINOLONE [Concomitant]
     Active Substance: TRIAMCINOLONE

REACTIONS (3)
  - Dermatitis atopic [Unknown]
  - Eczema [Not Recovered/Not Resolved]
  - Therapeutic product effect decreased [Not Recovered/Not Resolved]
